FAERS Safety Report 5161679-2 (Version None)
Quarter: 2006Q4

REPORT INFORMATION
  Report Type: 
  Country: None (occurrence: None)
  Receive Date: 20061130
  Receipt Date: 20060530
  Transmission Date: 20070319
  Serious: No
  Sender: FDA-Public Use
  Company Number: US-BRISTOL-MYERS SQUIBB COMPANY-13393889

PATIENT
  Age: 48 Year
  Sex: Female
  Weight: 113 kg

DRUGS (2)
  1. METFORMIN HCL [Suspect]
     Indication: DIABETES MELLITUS
  2. METOPROLOL SUCCINATE [Concomitant]

REACTIONS (1)
  - VOMITING [None]
